FAERS Safety Report 17201212 (Version 1)
Quarter: 2019Q4

REPORT INFORMATION
  Report Type: Spontaneous
  Country: US (occurrence: US)
  Receive Date: 20191203
  Receipt Date: 20191203
  Transmission Date: 20200122
  Serious: Yes (Hospitalization)
  Sender: FDA-Public Use
  Company Number: None

PATIENT
  Sex: Female
  Weight: 78 kg

DRUGS (5)
  1. ANASTROZOLE. [Concomitant]
     Active Substance: ANASTROZOLE
  2. ATORVASTATIN [Concomitant]
     Active Substance: ATORVASTATIN
  3. ASPIRIN. [Suspect]
     Active Substance: ASPIRIN
  4. LISINOPRIL. [Concomitant]
     Active Substance: LISINOPRIL
  5. ACETAMINOPHEN. [Concomitant]
     Active Substance: ACETAMINOPHEN

REACTIONS (3)
  - Spondylolisthesis [None]
  - Spinal stenosis [None]
  - Facet joint syndrome [None]

NARRATIVE: CASE EVENT DATE: 20191126
